FAERS Safety Report 9642788 (Version 1)
Quarter: 2013Q4

REPORT INFORMATION
  Report Type: Spontaneous
  Country: US (occurrence: US)
  Receive Date: 20131024
  Receipt Date: 20131024
  Transmission Date: 20140711
  Serious: Yes (Hospitalization, Other)
  Sender: FDA-Public Use
  Company Number: US-ASTRAZENECA-2013SE76747

PATIENT
  Age: 49 Year
  Sex: Female
  Weight: 115.2 kg

DRUGS (4)
  1. NEXIUM [Suspect]
     Route: 048
     Dates: start: 2012
  2. NEXIUM [Suspect]
     Route: 048
     Dates: start: 201306, end: 20130815
  3. VITAMIN [Concomitant]
     Indication: VITAMIN SUPPLEMENTATION
  4. DEXILANT [Concomitant]
     Indication: GASTROOESOPHAGEAL REFLUX DISEASE
     Dates: start: 20130930

REACTIONS (8)
  - Ankle fracture [Unknown]
  - Joint dislocation [Unknown]
  - Hypotension [Unknown]
  - Gastrooesophageal reflux disease [Unknown]
  - Feeling jittery [Unknown]
  - Pain [Unknown]
  - Abdominal discomfort [Unknown]
  - Off label use [Unknown]
